FAERS Safety Report 24969645 (Version 1)
Quarter: 2025Q1

REPORT INFORMATION
  Report Type: Report from Study
  Country: CA (occurrence: CA)
  Receive Date: 20250214
  Receipt Date: 20250214
  Transmission Date: 20250408
  Serious: Yes (Other)
  Sender: ACCORD
  Company Number: None

PATIENT
  Age: 46 Year
  Sex: Female

DRUGS (8)
  1. MONTELUKAST [Suspect]
     Active Substance: MONTELUKAST
     Indication: Product used for unknown indication
  2. OMALIZUMAB [Suspect]
     Active Substance: OMALIZUMAB
     Indication: Chronic spontaneous urticaria
     Route: 058
  3. RANITIDINE [Suspect]
     Active Substance: RANITIDINE
     Indication: Product used for unknown indication
  4. CANDESARTAN [Concomitant]
     Active Substance: CANDESARTAN
     Indication: Blood pressure measurement
  5. CETIRIZINE HYDROCHLORIDE [Concomitant]
     Active Substance: CETIRIZINE HYDROCHLORIDE
     Indication: Product used for unknown indication
  6. HYDROXYCHLOROQUINE [Concomitant]
     Active Substance: HYDROXYCHLOROQUINE
     Indication: Product used for unknown indication
  7. PREDNISONE [Concomitant]
     Active Substance: PREDNISONE
     Indication: Product used for unknown indication
  8. CETIRIZINE HYDROCHLORIDE [Concomitant]
     Active Substance: CETIRIZINE HYDROCHLORIDE
     Indication: Product used for unknown indication

REACTIONS (9)
  - Adverse drug reaction [Recovered/Resolved]
  - Discomfort [Recovered/Resolved]
  - Nervousness [Recovered/Resolved]
  - Eczema [Recovered/Resolved]
  - Urticaria [Recovered/Resolved]
  - Blood pressure increased [Recovered/Resolved]
  - Depression [Recovered/Resolved]
  - Pain [Recovered/Resolved]
  - Blister [Recovered/Resolved]
